FAERS Safety Report 18275045 (Version 1)
Quarter: 2020Q3

REPORT INFORMATION
  Report Type: Other
  Country: GB (occurrence: GB)
  Receive Date: 20200917
  Receipt Date: 20200917
  Transmission Date: 20201103
  Serious: Yes (Hospitalization)
  Sender: FDA-Public Use
  Company Number: GB-LAURUS LABS LIMITED-202000181

PATIENT
  Sex: Male

DRUGS (1)
  1. METFORMIN [Suspect]
     Active Substance: METFORMIN HYDROCHLORIDE
     Indication: TYPE 2 DIABETES MELLITUS
     Dosage: 50?60 G
     Route: 048

REACTIONS (6)
  - Agitation [Unknown]
  - Acute kidney injury [Unknown]
  - Lactic acidosis [Unknown]
  - Overdose [Unknown]
  - Abdominal pain [Unknown]
  - Vomiting [Unknown]
